FAERS Safety Report 24412793 (Version 1)
Quarter: 2024Q4

REPORT INFORMATION
  Report Type: Spontaneous
  Country: US (occurrence: None)
  Receive Date: 20241007
  Receipt Date: 20241007
  Transmission Date: 20250115
  Serious: Yes (Hospitalization)
  Sender: Public
  Company Number: None

PATIENT
  Age: 62 Year
  Sex: Male
  Weight: 137.25 kg

DRUGS (6)
  1. INGREZZA [Suspect]
     Active Substance: VALBENAZINE
     Indication: Tardive dyskinesia
     Dosage: OTHER QUANTITY : 20 CAPSULE(S);?FREQUENCY : DAILY;?
     Route: 048
  2. ARIPIPRAZOLE [Suspect]
     Active Substance: ARIPIPRAZOLE
     Indication: Bipolar disorder
     Dosage: FREQUENCY : EVERY DAY BEFORE NOON;?
     Route: 048
  3. ARIPIPRAZOLE [Suspect]
     Active Substance: ARIPIPRAZOLE
     Indication: Schizophrenia
  4. CLOZARIL [Suspect]
     Active Substance: CLOZAPINE
  5. THORAZINE [Suspect]
     Active Substance: CHLORPROMAZINE
  6. HALDOL [Suspect]
     Active Substance: HALOPERIDOL

REACTIONS (15)
  - Product use issue [None]
  - Insurance issue [None]
  - Economic problem [None]
  - General physical health deterioration [None]
  - Screaming [None]
  - Self-destructive behaviour [None]
  - Nonspecific reaction [None]
  - Obesity [None]
  - Constipation [None]
  - Chronic obstructive pulmonary disease [None]
  - Tobacco use disorder [None]
  - Tardive dyskinesia [None]
  - Drooling [None]
  - Bruxism [None]
  - Movement disorder [None]

NARRATIVE: CASE EVENT DATE: 20241003
